FAERS Safety Report 6430703-9 (Version None)
Quarter: 2009Q4

REPORT INFORMATION
  Report Type: 
  Country: None (occurrence: None)
  Receive Date: 20091105
  Receipt Date: 20091105
  Transmission Date: 20100525
  Serious: Yes (Hospitalization)
  Sender: FDA-Public Use
  Company Number: None

PATIENT
  Age: 56 Year
  Sex: Male

DRUGS (2)
  1. FUROSEMIDE [Suspect]
     Indication: HYPERTENSION
     Dosage: 20 MG BID OTHER
     Route: 050
     Dates: start: 20081029
  2. LISINOPRIL [Suspect]
     Indication: HYPERTENSION
     Dosage: 20 MG EVERY DAY PO
     Route: 048
     Dates: start: 20050713, end: 20090722

REACTIONS (6)
  - DYSPNOEA [None]
  - HYPOKALAEMIA [None]
  - HYPOTENSION [None]
  - OEDEMA PERIPHERAL [None]
  - TACHYCARDIA [None]
  - TREATMENT NONCOMPLIANCE [None]
